FAERS Safety Report 7293766-7 (Version None)
Quarter: 2011Q1

REPORT INFORMATION
  Report Type: 
  Country: None (occurrence: None)
  Receive Date: 20110204
  Receipt Date: 20110121
  Transmission Date: 20110831
  Serious: Yes (Hospitalization)
  Sender: FDA-Public Use
  Company Number: ALK_01556_2011

PATIENT
  Sex: Male

DRUGS (1)
  1. VIVITROL [Suspect]
     Indication: DRUG DEPENDENCE
     Dosage: INTRAMUSCULAR
     Route: 030
     Dates: start: 20110117

REACTIONS (11)
  - DIARRHOEA [None]
  - HEPATIC FAILURE [None]
  - DEHYDRATION [None]
  - RENAL FAILURE [None]
  - INAPPROPRIATE SCHEDULE OF DRUG ADMINISTRATION [None]
  - NAUSEA [None]
  - ASTHENIA [None]
  - VOMITING [None]
  - GASTROINTESTINAL DISORDER [None]
  - MUSCLE SPASMS [None]
  - BLOOD SODIUM DECREASED [None]
